FAERS Safety Report 10830448 (Version 1)
Quarter: 2015Q1

REPORT INFORMATION
  Report Type: Report from Study
  Country: US (occurrence: US)
  Receive Date: 20150219
  Receipt Date: 20150219
  Transmission Date: 20150721
  Serious: Yes (Other)
  Sender: FDA-Public Use
  Company Number: US-SA-2015SA020096

PATIENT
  Age: 51 Year
  Sex: Female

DRUGS (1)
  1. AUBAGIO [Suspect]
     Active Substance: TERIFLUNOMIDE
     Indication: MULTIPLE SCLEROSIS
     Route: 048
     Dates: start: 20150128

REACTIONS (6)
  - Neuralgia [Unknown]
  - Optic neuritis [Unknown]
  - Visual impairment [Unknown]
  - Foot operation [Unknown]
  - Drug dose omission [Unknown]
  - Memory impairment [Unknown]
